FAERS Safety Report 8179796 (Version 2)
Quarter: 2013Q3

REPORT INFORMATION
  Report Type: Spontaneous
  Country: US (occurrence: None)
  Receive Date: 20110930
  Receipt Date: 20130708
  Transmission Date: 20140515
  Serious: Yes (Hospitalization)
  Sender: FDA-Public Use
  Company Number: AUR-APL-2011-05197

PATIENT
  Age: 48 Year
  Sex: Female

DRUGS (9)
  1. LAMOTRIGINE [Suspect]
     Indication: DEPRESSION
     Dates: end: 20110825
  2. LAMOTRIGINE [Suspect]
     Indication: AFFECTIVE DISORDER
     Dates: end: 20110825
  3. COREG [Concomitant]
  4. RAMIPRIL [Concomitant]
  5. SYNTHROID (LEVOTHYROXIN SODIUM) [Concomitant]
  6. COUMADIN [Concomitant]
  7. SENNA PLUS (SENNA ALEXANDRINA) [Concomitant]
  8. COLACE [Concomitant]
  9. CELEXA [Concomitant]

REACTIONS (2)
  - Drug reaction with eosinophilia and systemic symptoms [None]
  - Burning sensation [None]
